FAERS Safety Report 19068515 (Version 1)
Quarter: 2021Q1

REPORT INFORMATION
  Report Type: Spontaneous
  Country: US (occurrence: US)
  Receive Date: 20210329
  Receipt Date: 20210329
  Transmission Date: 20210420
  Serious: Yes (Hospitalization, Other)
  Sender: FDA-Public Use
  Company Number: US-PFIZER INC-2021330203

PATIENT
  Age: 65 Year
  Sex: Male

DRUGS (1)
  1. VYNDAMAX [Suspect]
     Active Substance: TAFAMIDIS
     Dosage: 61 MG

REACTIONS (11)
  - Small intestinal obstruction [Unknown]
  - Hypoaesthesia [Unknown]
  - Walking aid user [Unknown]
  - Paraesthesia [Unknown]
  - Arthralgia [Not Recovered/Not Resolved]
  - Abdominal pain [Recovering/Resolving]
  - Dyspnoea [Unknown]
  - Back pain [Not Recovered/Not Resolved]
  - Gait inability [Unknown]
  - Oedema peripheral [Unknown]
  - Pain in extremity [Unknown]
